FAERS Safety Report 8809876 (Version 1)
Quarter: 2012Q4

REPORT INFORMATION
  Report Type: 
  Country: US (occurrence: US)
  Receive Date: 20120926
  Receipt Date: 20120926
  Transmission Date: 20130627
  Serious: No
  Sender: FDA-Public Use
  Company Number: US-B.I. PHARMACEUTICALS,INC./RIDGEFIELD-2012-BP-23344BP

PATIENT
  Age: 83 Year
  Sex: Male
  Weight: 85 kg

DRUGS (7)
  1. PRADAXA [Suspect]
     Indication: ATRIAL FIBRILLATION
     Dosage: 300 mg
     Route: 048
     Dates: start: 2011
  2. LIPITOR [Concomitant]
     Indication: BLOOD CHOLESTEROL INCREASED
     Dosage: 40 mg
     Route: 048
     Dates: start: 2007
  3. DIGOXIN [Concomitant]
     Dosage: 0.125 mg
     Route: 048
     Dates: start: 2007
  4. PRIMIDONE [Concomitant]
     Indication: TREMOR
     Dosage: 50 mg
     Route: 048
     Dates: start: 2007
  5. GABAPENTIN [Concomitant]
     Indication: GLUCOSE TOLERANCE IMPAIRED
     Dosage: 600 mg
     Route: 048
     Dates: start: 2010
  6. METOPROLOL [Concomitant]
     Indication: HYPERTENSION
     Dosage: 100 mg
     Route: 048
     Dates: start: 2009
  7. LASIX [Concomitant]
     Indication: FLUID RETENTION
     Route: 048

REACTIONS (1)
  - Visual impairment [Not Recovered/Not Resolved]
